FAERS Safety Report 6518016-8 (Version None)
Quarter: 2009Q4

REPORT INFORMATION
  Report Type: 
  Country: None (occurrence: None)
  Receive Date: 20091224
  Receipt Date: 20091215
  Transmission Date: 20100525
  Serious: Yes (Other)
  Sender: FDA-Public Use
  Company Number: US-WYE-H12683409

PATIENT
  Age: 77 Year
  Sex: Female
  Weight: 60 kg

DRUGS (9)
  1. AMIODARONE [Suspect]
     Indication: ATRIAL FIBRILLATION
     Route: 048
  2. GLIMEPIRIDE [Concomitant]
     Route: 065
  3. ESOMEPRAZOLE [Concomitant]
     Route: 065
  4. ISOSORBIDE DINITRATE [Concomitant]
     Route: 065
  5. FUROSEMIDE [Concomitant]
     Route: 065
  6. SPIRONOLACTONE [Concomitant]
     Route: 065
  7. PROPRANOLOL [Concomitant]
     Route: 065
  8. LISINOPRIL [Concomitant]
     Route: 065
  9. LEVOTHYROXINE SODIUM [Concomitant]
     Route: 065

REACTIONS (1)
  - HEPATIC STEATOSIS [None]
